FAERS Safety Report 12311153 (Version 1)
Quarter: 2016Q2

REPORT INFORMATION
  Report Type: Spontaneous
  Country: NO (occurrence: NO)
  Receive Date: 20160427
  Receipt Date: 20160427
  Transmission Date: 20160815
  Serious: Yes (Hospitalization, Disabling)
  Sender: FDA-Public Use
  Company Number: NO-SA-2016SA077970

PATIENT
  Age: 59 Year
  Sex: Female

DRUGS (6)
  1. ACTIVELLE [Concomitant]
     Active Substance: ESTRADIOL\NORETHINDRONE ACETATE
     Dosage: 1 DF = 1 MG OESTRADIOL AND 0,5 MG NORETHISTERONE
     Route: 048
  2. BACLOFEN. [Concomitant]
     Active Substance: BACLOFEN
     Route: 048
  3. AUBAGIO [Suspect]
     Active Substance: TERIFLUNOMIDE
     Indication: MULTIPLE SCLEROSIS
     Route: 048
     Dates: start: 201408
  4. FAMPYRA [Concomitant]
     Active Substance: DALFAMPRIDINE
     Route: 048
  5. PARACET [Concomitant]
     Active Substance: ACETAMINOPHEN
     Route: 048
  6. TOVIAZ [Concomitant]
     Active Substance: FESOTERODINE FUMARATE
     Indication: BLADDER DISORDER
     Route: 048

REACTIONS (3)
  - Cellulitis [Recovered/Resolved with Sequelae]
  - Finger amputation [Recovered/Resolved with Sequelae]
  - Gangrene [Recovered/Resolved with Sequelae]

NARRATIVE: CASE EVENT DATE: 201512
